FAERS Safety Report 7278976-7 (Version None)
Quarter: 2011Q1

REPORT INFORMATION
  Report Type: 
  Country: None (occurrence: None)
  Receive Date: 20110207
  Receipt Date: 20110126
  Transmission Date: 20110831
  Serious: Yes (Other)
  Sender: FDA-Public Use
  Company Number: PHHY2011IT08246

PATIENT
  Sex: Male

DRUGS (3)
  1. ZOMETA [Suspect]
     Indication: PROSTATE CANCER METASTATIC
     Dosage: 4 MG, QMO
     Route: 042
     Dates: start: 20100101, end: 20100601
  2. DECAPEPTYL [Concomitant]
  3. CASODEX [Concomitant]

REACTIONS (3)
  - OSTEONECROSIS OF JAW [None]
  - ABSCESS JAW [None]
  - BONE DISORDER [None]
